FAERS Safety Report 5163702-8 (Version None)
Quarter: 2006Q4

REPORT INFORMATION
  Report Type: 
  Country: None (occurrence: None)
  Receive Date: 20061204
  Receipt Date: 20020430
  Transmission Date: 20070319
  Serious: Yes (Hospitalization)
  Sender: FDA-Public Use
  Company Number: FR-GLAXOSMITHKLINE-B0267110A

PATIENT
  Age: 2 Day
  Sex: Female
  Weight: 2.5 kg

DRUGS (8)
  1. RETROVIR [Suspect]
     Indication: ANTIVIRAL PROPHYLAXIS
     Route: 048
     Dates: start: 20020219, end: 20020307
  2. COMBIVIR [Suspect]
     Indication: HIV INFECTION
     Route: 048
  3. RETROVIR [Suspect]
     Route: 042
     Dates: start: 20020219, end: 20020219
  4. VIRACEPT [Suspect]
     Indication: HIV INFECTION
     Route: 048
     Dates: start: 20010717
  5. SUSTIVA [Suspect]
     Indication: HIV INFECTION
     Route: 048
     Dates: end: 20010717
  6. GLUCOPHAGE [Concomitant]
     Indication: DIABETES MELLITUS
     Route: 065
     Dates: end: 20010701
  7. INSULIN [Concomitant]
     Indication: DIABETES MELLITUS
     Route: 065
     Dates: start: 20010701
  8. ZOVIRAX [Concomitant]
     Route: 065
     Dates: start: 20020201

REACTIONS (7)
  - BLOOD LACTATE DEHYDROGENASE INCREASED [None]
  - GRAND MAL CONVULSION [None]
  - HYPOCALCAEMIA [None]
  - LACTIC ACIDOSIS [None]
  - LIPASE INCREASED [None]
  - OCULOGYRATION [None]
  - STRABISMUS [None]
